FAERS Safety Report 9905672 (Version 1)
Quarter: 2014Q1

REPORT INFORMATION
  Report Type: Spontaneous
  Country: US (occurrence: US)
  Receive Date: 20140218
  Receipt Date: 20140218
  Transmission Date: 20141002
  Serious: No
  Sender: FDA-Public Use
  Company Number: US-GILEAD-2012-0051606

PATIENT
  Sex: Male

DRUGS (2)
  1. LETAIRIS [Suspect]
     Indication: PULMONARY HYPERTENSION
     Dosage: 10 UNK, UNK
     Route: 048
  2. LETAIRIS [Suspect]
     Indication: HIV INFECTION
     Dosage: 5 MG, UNK
     Route: 048
     Dates: start: 20120207

REACTIONS (1)
  - Dizziness [Unknown]
